FAERS Safety Report 7392241-9 (Version None)
Quarter: 2011Q2

REPORT INFORMATION
  Report Type: 
  Country: None (occurrence: None)
  Receive Date: 20110404
  Receipt Date: 20110328
  Transmission Date: 20111010
  Serious: Yes (Hospitalization, Disabling)
  Sender: FDA-Public Use
  Company Number: US-MERCK-1103USA02137

PATIENT
  Age: 66 Year
  Sex: Female
  Weight: 90 kg

DRUGS (4)
  1. NEXIUM [Concomitant]
     Indication: GASTROENTERITIS
     Route: 065
  2. ALENDRONATE SODIUM [Suspect]
     Indication: OSTEOPOROSIS
     Route: 048
     Dates: start: 20091101, end: 20100608
  3. INSULIN [Concomitant]
     Route: 065
  4. FOSAMAX PLUS D [Suspect]
     Indication: OSTEOPOROSIS
     Route: 048
     Dates: start: 20030101, end: 20091101

REACTIONS (9)
  - CHEST PAIN [None]
  - MUSCULAR WEAKNESS [None]
  - PALPITATIONS [None]
  - ARTHRALGIA [None]
  - CONTUSION [None]
  - OSTEOPOROSIS [None]
  - FALL [None]
  - BONE PAIN [None]
  - MYOCARDIAL INFARCTION [None]
